FAERS Safety Report 7440934-7 (Version None)
Quarter: 2011Q2

REPORT INFORMATION
  Report Type: 
  Country: None (occurrence: None)
  Receive Date: 20110427
  Receipt Date: 20110419
  Transmission Date: 20111010
  Serious: Yes (Hospitalization, Other)
  Sender: FDA-Public Use
  Company Number: PHHY2011BR33490

PATIENT
  Sex: Female

DRUGS (1)
  1. CATAFLAM [Suspect]
     Dosage: 0.5 MG/ML DROP, 20 ML

REACTIONS (4)
  - NAUSEA [None]
  - ACCIDENTAL DRUG INTAKE BY CHILD [None]
  - SWELLING [None]
  - ABDOMINAL DISCOMFORT [None]
